FAERS Safety Report 25152158 (Version 1)
Quarter: 2025Q2

REPORT INFORMATION
  Report Type: Spontaneous
  Country: US (occurrence: US)
  Receive Date: 20250402
  Receipt Date: 20250402
  Transmission Date: 20250716
  Serious: Yes (Other)
  Sender: PFIZER
  Company Number: US-PFIZER INC-202500069389

PATIENT
  Age: 57 Year
  Sex: Female

DRUGS (3)
  1. NURTEC ODT [Suspect]
     Active Substance: RIMEGEPANT SULFATE
  2. AJOVY [Concomitant]
     Active Substance: FREMANEZUMAB-VFRM
  3. ELETRIPTAN [Concomitant]
     Active Substance: ELETRIPTAN

REACTIONS (1)
  - Vascular stent stenosis [Not Recovered/Not Resolved]

NARRATIVE: CASE EVENT DATE: 20250322
